FAERS Safety Report 13742739 (Version 2)
Quarter: 2017Q4

REPORT INFORMATION
  Report Type: Report from Study
  Country: JP (occurrence: JP)
  Receive Date: 20170711
  Receipt Date: 20171002
  Transmission Date: 20180320
  Serious: Yes (Other)
  Sender: FDA-Public Use
  Company Number: JP-MYLANLABS-2017M1041235

PATIENT
  Age: 61 Year
  Sex: Male

DRUGS (2)
  1. COLECALCIFEROL [Concomitant]
     Active Substance: CHOLECALCIFEROL
     Indication: PRODUCT USED FOR UNKNOWN INDICATION
     Dosage: HAD BEEN RECEIVING SINCE 17 MONTHS
     Route: 065
  2. ALENDRONATE [Suspect]
     Active Substance: ALENDRONATE SODIUM
     Indication: OSTEOPOROSIS
     Dosage: HAD BEEN RECEIVING SINCE 17 MONTHS
     Route: 065

REACTIONS (2)
  - Resorption bone decreased [Unknown]
  - Bone formation decreased [Unknown]
